FAERS Safety Report 7098902-3 (Version None)
Quarter: 2010Q4

REPORT INFORMATION
  Report Type: 
  Country: None (occurrence: None)
  Receive Date: 20101112
  Receipt Date: 20101028
  Transmission Date: 20110411
  Serious: Yes (Other)
  Sender: FDA-Public Use
  Company Number: US-AMGEN-QUU430327

PATIENT

DRUGS (3)
  1. NEULASTA [Suspect]
     Indication: CHEMOTHERAPY
     Dosage: UNK UNK, UNK
     Route: 065
     Dates: start: 20100806
  2. DOXORUBICIN HYDROCHLORIDE [Concomitant]
     Dosage: UNK UNK, UNK
  3. CYCLOPHOSPHAMIDE [Concomitant]
     Dosage: UNK UNK, UNK

REACTIONS (1)
  - NEUTROPENIA [None]
